FAERS Safety Report 8772093 (Version 4)
Quarter: 2012Q4

REPORT INFORMATION
  Report Type: 
  Country: JP (occurrence: JP)
  Receive Date: 20120906
  Receipt Date: 20120928
  Transmission Date: 20130627
  Serious: Yes (Hospitalization)
  Sender: FDA-Public Use
  Company Number: JP-SHIRE-ALL1-2012-04096

PATIENT
  Age: 64 Year
  Sex: Female

DRUGS (2)
  1. FOSRENOL [Suspect]
     Indication: HYPERPHOSPHATAEMIA
     Dosage: 750 mg, Unknown
     Route: 048
     Dates: end: 20120622
  2. CALTAN [Concomitant]
     Indication: HYPERPHOSPHATAEMIA
     Dosage: 4500 mg, Unknown
     Route: 048

REACTIONS (2)
  - Septic shock [Recovering/Resolving]
  - Large intestine perforation [Unknown]
